FAERS Safety Report 24584122 (Version 1)
Quarter: 2024Q4

REPORT INFORMATION
  Report Type: Report from Study
  Country: GB (occurrence: GB)
  Receive Date: 20241106
  Receipt Date: 20241106
  Transmission Date: 20250115
  Serious: Yes (Death, Other)
  Sender: SANDOZ
  Company Number: GB-002147023-NVSC2021GB055911

PATIENT
  Sex: Male

DRUGS (4)
  1. HYRIMOZ [Suspect]
     Active Substance: ADALIMUMAB-ADAZ
     Indication: Colitis ulcerative
     Dosage: 160 MG (LOADING DOSE) (WEEK 0) (EVERY OTHER WEEK)
     Route: 065
     Dates: start: 20210219
  2. HYRIMOZ [Suspect]
     Active Substance: ADALIMUMAB-ADAZ
     Dosage: 40 MG  EOW (EVERY OTHER WEEK)
     Route: 058
  3. HYRIMOZ [Suspect]
     Active Substance: ADALIMUMAB-ADAZ
     Indication: Gastrointestinal inflammation
     Dosage: 40 MG (WEEK 4)
     Route: 065
  4. HYRIMOZ [Suspect]
     Active Substance: ADALIMUMAB-ADAZ
     Indication: Inflammatory bowel disease
     Dosage: 80 MG (WEEK 2)
     Route: 065

REACTIONS (4)
  - Death [Fatal]
  - Haematochezia [Recovering/Resolving]
  - Bowel movement irregularity [Recovering/Resolving]
  - Faecal volume increased [Unknown]
